FAERS Safety Report 4271223-X (Version None)
Quarter: 2004Q1

REPORT INFORMATION
  Report Type: 
  Country: None (occurrence: None)
  Receive Date: 20040113
  Receipt Date: 20031229
  Transmission Date: 20041129
  Serious: Yes (Hospitalization)
  Sender: FDA-Public Use
  Company Number: A02200303084

PATIENT
  Age: 66 Year
  Sex: Male

DRUGS (5)
  1. XATRAL (ALFUZOSIN), TABLET PR, 5 MG [Suspect]
     Indication: BENIGN PROSTATIC HYPERPLASIA
     Dosage: 5 MG, BID, ORAL
     Route: 048
     Dates: start: 20031108, end: 20031110
  2. RAMIPRIL [Concomitant]
  3. GLUCOPHAGE [Concomitant]
  4. AMAREL (GLIMIPIRIDE) [Concomitant]
  5. FLUDEX LP (INDAPAMIDE) [Concomitant]

REACTIONS (6)
  - ERYTHEMA [None]
  - GASTRIC POLYPS [None]
  - HIATUS HERNIA [None]
  - NEOPLASM PROSTATE [None]
  - PRIAPISM [None]
  - PROSTATIC SPECIFIC ANTIGEN INCREASED [None]
